FAERS Safety Report 24148193 (Version 3)
Quarter: 2024Q3

REPORT INFORMATION
  Report Type: Report from Study
  Country: IT (occurrence: IT)
  Receive Date: 20240729
  Receipt Date: 20240920
  Transmission Date: 20241017
  Serious: Yes (Hospitalization)
  Sender: PFIZER
  Company Number: None

PATIENT
  Age: 52 Year
  Sex: Female
  Weight: 64 kg

DRUGS (7)
  1. CARBOPLATIN [Suspect]
     Active Substance: CARBOPLATIN
     Indication: Triple negative breast cancer
     Dosage: AUC 1,7 /WEEKLY
     Route: 042
     Dates: start: 20240329, end: 20240524
  2. PACLITAXEL [Suspect]
     Active Substance: PACLITAXEL
     Indication: Triple negative breast cancer
     Dosage: 80 MG, WEEKLY
     Route: 042
     Dates: start: 20240329, end: 20240524
  3. KEYTRUDA [Suspect]
     Active Substance: PEMBROLIZUMAB
     Indication: Triple negative breast cancer
     Dosage: FREQ:21 D
     Route: 042
     Dates: start: 20240329, end: 20240510
  4. DEXAMETHASONE [Concomitant]
     Active Substance: DEXAMETHASONE
     Indication: Chemotherapy side effect prophylaxis
     Dosage: 8 MG, WEEKLY
     Route: 042
     Dates: start: 20240329, end: 20240524
  5. TRIMETON [Concomitant]
     Active Substance: CHLORPHENIRAMINE MALEATE
     Indication: Chemotherapy side effect prophylaxis
     Dosage: 10 MG, WEEKLY
     Route: 042
     Dates: start: 20240329, end: 20240524
  6. PANTOPRAZOLO SUN [Concomitant]
     Indication: Prophylaxis against gastrointestinal ulcer
     Dosage: 40 MG, WEEKLY
     Route: 042
     Dates: start: 20240329, end: 20240524
  7. ALOXI [Concomitant]
     Active Substance: PALONOSETRON HYDROCHLORIDE
     Indication: Prophylaxis of nausea and vomiting
     Dosage: 250 MG, WEEKLY
     Route: 042
     Dates: start: 20240329, end: 20240524

REACTIONS (2)
  - Pyrexia [Recovering/Resolving]
  - Acute kidney injury [Recovering/Resolving]

NARRATIVE: CASE EVENT DATE: 20240605
